FAERS Safety Report 7912414-3 (Version None)
Quarter: 2011Q4

REPORT INFORMATION
  Report Type: 
  Country: None (occurrence: None)
  Receive Date: 20111114
  Receipt Date: 20111109
  Transmission Date: 20120403
  Serious: Yes (Other)
  Sender: FDA-Public Use
  Company Number: US-PFIZER INC-2011274690

PATIENT
  Sex: Female
  Weight: 2.87 kg

DRUGS (6)
  1. VITAMIN B-12 [Concomitant]
     Indication: PERNICIOUS ANAEMIA
     Dosage: UNK
     Route: 064
     Dates: start: 20080328
  2. IRON [Concomitant]
     Indication: PERNICIOUS ANAEMIA
     Dosage: UNK
     Route: 064
     Dates: start: 20080328
  3. ZOFRAN [Concomitant]
     Dosage: 8 MG, UNK
     Route: 064
     Dates: start: 20080414
  4. ZITHROMAX [Concomitant]
     Dosage: UNK
     Route: 064
     Dates: start: 20080428
  5. ZOLOFT [Suspect]
     Indication: ANXIETY
     Dosage: UNK
     Route: 064
     Dates: start: 20080101
  6. DARVOCET-N 50 [Concomitant]
     Indication: PAIN
     Dosage: 100 MG, UNK
     Route: 064
     Dates: start: 20080328

REACTIONS (2)
  - MATERNAL EXPOSURE TIMING UNSPECIFIED [None]
  - CONGENITAL ANOMALY [None]
